FAERS Safety Report 11227104 (Version 1)
Quarter: 2015Q2

REPORT INFORMATION
  Report Type: Spontaneous
  Country: FR (occurrence: FR)
  Receive Date: 20150630
  Receipt Date: 20150630
  Transmission Date: 20150821
  Serious: Yes (Hospitalization, Other)
  Sender: FDA-Public Use
  Company Number: FR-PFIZER INC-2015203815

PATIENT
  Age: 67 Year
  Sex: Male

DRUGS (4)
  1. VENTOLINE /00139502/ [Concomitant]
     Indication: ASTHMA
     Dosage: UNK, AS NEEDED
  2. SERETIDE [Concomitant]
     Active Substance: FLUTICASONE FUROATE\SALMETEROL XINAFOATE
     Indication: ASTHMA
     Dosage: UNK, 2X/DAY
  3. ARACYTINE [Suspect]
     Active Substance: CYTARABINE
     Indication: ACUTE MYELOID LEUKAEMIA
     Dosage: 400 MG, CYCLIC (ON D1 AND D7)
     Dates: start: 20150304
  4. IDARUBICIN HCL [Suspect]
     Active Substance: IDARUBICIN HYDROCHLORIDE
     Indication: ACUTE MYELOID LEUKAEMIA
     Dosage: 24 MG, CYCLIC (ON D1 AND D3)
     Dates: start: 20150304

REACTIONS (4)
  - Peritonitis [Recovered/Resolved]
  - Staphylococcal infection [Unknown]
  - Small intestinal perforation [Unknown]
  - Orthostatic hypotension [Unknown]

NARRATIVE: CASE EVENT DATE: 2015
